FAERS Safety Report 8968276 (Version 3)
Quarter: 2013Q1

REPORT INFORMATION
  Report Type: Report from Study
  Country: DE (occurrence: DE)
  Receive Date: 20121218
  Receipt Date: 20130314
  Transmission Date: 20140127
  Serious: Yes (Other)
  Sender: FDA-Public Use
  Company Number: DE-BAYER-2012-129702

PATIENT
  Sex: Female
  Weight: 49 kg

DRUGS (2)
  1. DROSPIRENONE + ETHINYLESTRADIOL 20?G (24+4) [Suspect]
     Indication: ORAL CONTRACEPTION
     Dosage: UNK UNK, QD
     Route: 048
     Dates: start: 20121107, end: 20121206
  2. ADDITIONAL STUDY MEDICATION [Suspect]
     Indication: ENZYME INHIBITION
     Dosage: 200 MG, BID
     Route: 048
     Dates: start: 20121204, end: 20121206

REACTIONS (8)
  - Vision blurred [Unknown]
  - Metrorrhagia [Recovered/Resolved]
  - Dizziness [None]
  - Nausea [None]
  - Vomiting [None]
  - Diarrhoea [None]
  - Palpitations [None]
  - Hot flush [None]
